FAERS Safety Report 21057195 (Version 2)
Quarter: 2022Q3

REPORT INFORMATION
  Report Type: Report from Study
  Country: AU (occurrence: None)
  Receive Date: 20220708
  Receipt Date: 20220718
  Transmission Date: 20221027
  Serious: Yes (Hospitalization, Other)
  Sender: FDA-Public Use
  Company Number: AU-ROCHE-2939830

PATIENT
  Age: 62 Year
  Sex: Male
  Weight: 87 kg

DRUGS (10)
  1. VEMURAFENIB [Suspect]
     Active Substance: VEMURAFENIB
     Indication: Lung adenocarcinoma
     Dosage: 11 DAYS - CYCLE 1
     Route: 048
     Dates: start: 20210712, end: 20220331
  2. COBIMETINIB [Suspect]
     Active Substance: COBIMETINIB
     Indication: Lung adenocarcinoma
     Dosage: 11 DAYS - CYCLE 1
     Route: 048
     Dates: start: 20210712, end: 20220330
  3. PANADOL [Concomitant]
     Active Substance: ACETAMINOPHEN
     Route: 048
     Dates: start: 20201116
  4. DOCUSATE SODIUM\SENNOSIDES A AND B [Concomitant]
     Active Substance: DOCUSATE SODIUM\SENNOSIDES A AND B
     Indication: Prophylaxis
     Route: 048
     Dates: start: 2021
  5. OLANZAPINE [Concomitant]
     Active Substance: OLANZAPINE
     Route: 048
     Dates: start: 2021
  6. NALOXONE HYDROCHLORIDE\OXYCODONE HYDROCHLORIDE [Concomitant]
     Active Substance: NALOXONE HYDROCHLORIDE\OXYCODONE HYDROCHLORIDE
     Route: 048
     Dates: start: 2021
  7. PERINDOPRIL [Concomitant]
     Active Substance: PERINDOPRIL
     Route: 048
     Dates: start: 2021
  8. PREGABALIN [Concomitant]
     Active Substance: PREGABALIN
     Route: 048
     Dates: start: 2021
  9. RIVAROXABAN [Concomitant]
     Active Substance: RIVAROXABAN
     Indication: Prophylaxis
     Route: 048
     Dates: start: 202011
  10. MOVICOL [Concomitant]
     Active Substance: POLYETHYLENE GLYCOL 3350\POTASSIUM CHLORIDE\SODIUM BICARBONATE\SODIUM CHLORIDE
     Indication: Prophylaxis
     Dosage: 1 SACHET
     Route: 048
     Dates: start: 20201116

REACTIONS (7)
  - Squamous cell carcinoma [Recovered/Resolved]
  - Pyrexia [Recovered/Resolved]
  - Rash maculo-papular [Recovered/Resolved]
  - Photosensitivity reaction [Recovered/Resolved]
  - Soft tissue infection [Recovered/Resolved]
  - Keratoacanthoma [Recovered/Resolved]
  - Bowen^s disease [Recovered/Resolved]

NARRATIVE: CASE EVENT DATE: 20210722
